FAERS Safety Report 13614561 (Version 12)
Quarter: 2019Q3

REPORT INFORMATION
  Report Type: Spontaneous
  Country: JP (occurrence: JP)
  Receive Date: 20170606
  Receipt Date: 20190815
  Transmission Date: 20191004
  Serious: Yes (Hospitalization, Other)
  Sender: FDA-Public Use
  Company Number: JP-009507513-1704JPN002445J

PATIENT
  Age: 69 Year
  Sex: Male
  Weight: 81 kg

DRUGS (7)
  1. KEYTRUDA [Suspect]
     Active Substance: PEMBROLIZUMAB
     Indication: LUNG ADENOCARCINOMA STAGE III
     Dosage: 200 MG, Q3W
     Route: 041
     Dates: start: 20170425, end: 20170425
  2. CALONAL [Concomitant]
     Active Substance: ACETAMINOPHEN
     Indication: LUNG ADENOCARCINOMA STAGE III
     Dosage: 400 MG, PRN
     Route: 048
     Dates: end: 20170518
  3. CALONAL [Concomitant]
     Active Substance: ACETAMINOPHEN
     Dosage: 400 MG, TID
     Route: 048
     Dates: start: 20170427
  4. KETOPROFEN. [Concomitant]
     Active Substance: KETOPROFEN
     Indication: LUNG ADENOCARCINOMA STAGE III
     Dosage: 20 MG, QD
     Route: 062
     Dates: start: 20170505, end: 20170505
  5. VALSARTAN. [Concomitant]
     Active Substance: VALSARTAN
     Dosage: 40 MG, QD
     Route: 048
  6. ATELEC [Concomitant]
     Active Substance: CILNIDIPINE
     Dosage: 10 MG, QD
     Route: 048
  7. MEDICON [Concomitant]
     Active Substance: DEXTROMETHORPHAN HYDROBROMIDE
     Indication: LUNG ADENOCARCINOMA STAGE III
     Dosage: 30 MG, TID
     Route: 048
     Dates: start: 20170425, end: 20170514

REACTIONS (7)
  - Feeling cold [Recovered/Resolved]
  - Hyperkalaemia [Recovered/Resolved]
  - Pneumonia bacterial [Recovered/Resolved]
  - Constipation [Recovered/Resolved]
  - Hyponatraemia [Recovered/Resolved]
  - Infusion site reaction [Recovered/Resolved]
  - Organising pneumonia [Recovered/Resolved]

NARRATIVE: CASE EVENT DATE: 20170425
